FAERS Safety Report 12257426 (Version 1)
Quarter: 2016Q2

REPORT INFORMATION
  Report Type: Spontaneous
  Country: US (occurrence: US)
  Receive Date: 20160412
  Receipt Date: 20160412
  Transmission Date: 20160815
  Serious: No
  Sender: FDA-Public Use
  Company Number: US-BAYER-2016-069533

PATIENT
  Age: 82 Year
  Sex: Male
  Weight: 72.56 kg

DRUGS (3)
  1. CLARITIN [Suspect]
     Active Substance: LORATADINE
     Dosage: 1 DF, PRN
     Route: 048
     Dates: start: 20160324
  2. COQ10 [Concomitant]
     Active Substance: UBIDECARENONE
     Dosage: UNK
  3. ATORVASTATIN [Concomitant]
     Active Substance: ATORVASTATIN
     Dosage: UNK

REACTIONS (1)
  - Somnolence [None]

NARRATIVE: CASE EVENT DATE: 20160325
